FAERS Safety Report 21988861 (Version 1)
Quarter: 2023Q1

REPORT INFORMATION
  Report Type: Spontaneous
  Country: US (occurrence: US)
  Receive Date: 20230214
  Receipt Date: 20230214
  Transmission Date: 20230418
  Serious: Yes (Other)
  Sender: FDA-Public Use
  Company Number: US-SUN PHARMACEUTICAL INDUSTRIES LTD-2020R1-256343

PATIENT
  Age: 24 Year
  Sex: Female

DRUGS (2)
  1. DIGOXIN [Suspect]
     Active Substance: DIGOXIN
     Indication: Foetal cardiac disorder
     Dosage: 500 MICROGRAM, BID
     Route: 048
  2. DIGOXIN [Suspect]
     Active Substance: DIGOXIN
     Dosage: 250 MICROGRAM, BID
     Route: 065

REACTIONS (2)
  - Premature labour [Unknown]
  - Exposure during pregnancy [Unknown]
